FAERS Safety Report 21682146 (Version 1)
Quarter: 2022Q4

REPORT INFORMATION
  Report Type: Report from Study
  Country: CA (occurrence: CA)
  Receive Date: 20221205
  Receipt Date: 20221205
  Transmission Date: 20230113
  Serious: Yes (Other)
  Sender: FDA-Public Use
  Company Number: CA-AMGEN-CANSL2022160289

PATIENT
  Age: 68 Year
  Sex: Female
  Weight: 71.5 kg

DRUGS (2)
  1. MVASI [Suspect]
     Active Substance: BEVACIZUMAB-AWWB
     Indication: Hereditary haemorrhagic telangiectasia
     Dosage: 345 MILLIGRAM, Q4WK
     Route: 065
     Dates: start: 20200828
  2. MVASI [Suspect]
     Active Substance: BEVACIZUMAB-AWWB
     Dosage: 360 MILLIGRAM, Q2WK
     Route: 040

REACTIONS (4)
  - Haemoglobin decreased [Unknown]
  - Influenza like illness [Unknown]
  - Epistaxis [Unknown]
  - Off label use [Unknown]
